FAERS Safety Report 7418606-4 (Version None)
Quarter: 2011Q2

REPORT INFORMATION
  Report Type: 
  Country: None (occurrence: None)
  Receive Date: 20110415
  Receipt Date: 20101021
  Transmission Date: 20111010
  Serious: Yes (Hospitalization, Other)
  Sender: FDA-Public Use
  Company Number: US-BAYER-200933612NA

PATIENT
  Age: 42 Year
  Sex: Female
  Weight: 61 kg

DRUGS (9)
  1. LISINOPRIL [Concomitant]
  2. YAZ [Suspect]
     Indication: MENSTRUAL DISORDER
     Route: 048
     Dates: start: 20060601, end: 20070615
  3. LOESTRIN 1.5/30 [Concomitant]
     Dates: start: 20070601
  4. NAPROXEN [Concomitant]
  5. POLYETHYLENE GLYCOL [Concomitant]
     Indication: CONSTIPATION
  6. YASMIN [Suspect]
  7. SINGULAIR [Concomitant]
     Dates: start: 20080701
  8. PREVACID [Concomitant]
     Indication: GASTROOESOPHAGEAL REFLUX DISEASE
     Dates: start: 20080701
  9. TINDAMAX [Concomitant]

REACTIONS (3)
  - CHOLECYSTITIS [None]
  - GALLBLADDER INJURY [None]
  - CHOLECYSTECTOMY [None]
